FAERS Safety Report 24846150 (Version 1)
Quarter: 2025Q1

REPORT INFORMATION
  Report Type: Spontaneous
  Country: KR (occurrence: KR)
  Receive Date: 20250115
  Receipt Date: 20250115
  Transmission Date: 20250409
  Serious: Yes (Other)
  Sender: UCB
  Company Number: KR-UCBSA-2025002012

PATIENT
  Age: 84 Year
  Sex: Male

DRUGS (3)
  1. KEPPRA [Suspect]
     Active Substance: LEVETIRACETAM
     Indication: Seizure prophylaxis
     Dosage: UNK 2X/DAY (BID)
     Dates: start: 20230814
  2. KEPPRA [Suspect]
     Active Substance: LEVETIRACETAM
     Indication: Subdural haemorrhage
     Dates: start: 20230908, end: 20231002
  3. KEPPRA [Suspect]
     Active Substance: LEVETIRACETAM
     Indication: Off label use

REACTIONS (2)
  - Eosinophilia [Recovering/Resolving]
  - Off label use [Unknown]

NARRATIVE: CASE EVENT DATE: 20230927
